FAERS Safety Report 8356322-5 (Version None)
Quarter: 2012Q2

REPORT INFORMATION
  Report Type: 
  Country: None (occurrence: None)
  Receive Date: 20120514
  Receipt Date: 20120503
  Transmission Date: 20120825
  Serious: Yes (Life-Threatening, Hospitalization)
  Sender: FDA-Public Use
  Company Number: SE-UCBSA-056883

PATIENT
  Age: 60 Year
  Sex: Male

DRUGS (7)
  1. PREDNISOLONE [Concomitant]
     Dosage: 5 MG
     Dates: start: 20110316
  2. PREDNISOLONE [Concomitant]
     Dosage: 40 MG DAILY
     Dates: start: 20120201, end: 20120101
  3. METHOTREXATE SODIUM [Concomitant]
     Dates: start: 20120101
  4. CIMZIA [Suspect]
     Indication: RHEUMATOID ARTHRITIS
     Dosage: 200 MG
     Dates: start: 20111107, end: 20120115
  5. METHOTREXATE SODIUM [Concomitant]
     Dosage: 20 MG
     Dates: start: 20070226, end: 20120101
  6. METHOTREXATE SODIUM [Concomitant]
     Indication: RHEUMATOID ARTHRITIS
     Dates: start: 19971201
  7. WARFARIN SODIUM [Concomitant]
     Indication: DEEP VEIN THROMBOSIS

REACTIONS (3)
  - CEREBRAL INFARCTION [None]
  - LOWER GASTROINTESTINAL HAEMORRHAGE [None]
  - PNEUMONIA [None]
